FAERS Safety Report 16248368 (Version 3)
Quarter: 2019Q3

REPORT INFORMATION
  Report Type: Report from Study
  Country: None (occurrence: US)
  Receive Date: 20190429
  Receipt Date: 20190820
  Transmission Date: 20191004
  Serious: Yes (Other)
  Sender: FDA-Public Use
  Company Number: US-ABBVIE-19K-163-2757131-00

PATIENT
  Sex: Female
  Weight: 54.48 kg

DRUGS (2)
  1. LEFLUNOMIDE. [Concomitant]
     Active Substance: LEFLUNOMIDE
     Indication: RHEUMATOID ARTHRITIS
  2. HUMIRA [Suspect]
     Active Substance: ADALIMUMAB
     Indication: RHEUMATOID ARTHRITIS
     Route: 058

REACTIONS (5)
  - Retinal tear [Unknown]
  - Blindness unilateral [Unknown]
  - Iritis [Unknown]
  - Cataract [Unknown]
  - Eye swelling [Unknown]

NARRATIVE: CASE EVENT DATE: 2009
